FAERS Safety Report 6098795-7 (Version None)
Quarter: 2009Q1

REPORT INFORMATION
  Report Type: 
  Country: None (occurrence: None)
  Receive Date: 20090302
  Receipt Date: 20090218
  Transmission Date: 20090719
  Serious: Yes (Other)
  Sender: FDA-Public Use
  Company Number: JP-PFIZER INC-2009170480

PATIENT

DRUGS (2)
  1. SALAZOPYRIN [Suspect]
     Indication: COLITIS ULCERATIVE
     Dosage: 1500 UNK, UNK
     Route: 048
     Dates: start: 20090130, end: 20090206
  2. ANTIPSYCHOTICS [Concomitant]

REACTIONS (3)
  - GASTROINTESTINAL NECROSIS [None]
  - PSEUDOMEMBRANOUS COLITIS [None]
  - RECTAL HAEMORRHAGE [None]
